FAERS Safety Report 22593636 (Version 1)
Quarter: 2023Q2

REPORT INFORMATION
  Report Type: Spontaneous
  Country: US (occurrence: US)
  Receive Date: 20230613
  Receipt Date: 20230613
  Transmission Date: 20230721
  Serious: Yes (Hospitalization)
  Sender: FDA-Public Use
  Company Number: US-MYLANLABS-2023M1060658

PATIENT
  Age: 69 Year
  Sex: Male

DRUGS (3)
  1. PREDNISONE [Suspect]
     Active Substance: PREDNISONE
     Indication: Acute disseminated encephalomyelitis
     Dosage: 60 MILLIGRAM, QD (INITIAL DOSE)
     Route: 065
  2. PREDNISONE [Suspect]
     Active Substance: PREDNISONE
     Dosage: 40 MILLIGRAM, QD (TAPERED DOSE)
     Route: 065
  3. Immunoglobulin [Concomitant]
     Indication: Acute disseminated encephalomyelitis
     Dosage: 2 GRAM PER KILOGRAM (2G/KG DIVIDED OVER 4 DAYS)
     Route: 042

REACTIONS (2)
  - Rebound effect [Not Recovered/Not Resolved]
  - Acute disseminated encephalomyelitis [Not Recovered/Not Resolved]
